FAERS Safety Report 9096391 (Version 2)
Quarter: 2013Q2

REPORT INFORMATION
  Report Type: Spontaneous
  Country: US (occurrence: US)
  Receive Date: 20130124
  Receipt Date: 20130614
  Transmission Date: 20140414
  Serious: Yes (Other)
  Sender: FDA-Public Use
  Company Number: 2013SP000333

PATIENT
  Age: 72 Year
  Sex: Female

DRUGS (2)
  1. OMNARIS NASAL SPRAY [Suspect]
     Indication: HYPERSENSITIVITY
     Route: 045
     Dates: start: 2011
  2. OMNARIS NASAL SPRAY [Suspect]
     Indication: NASAL CONGESTION
     Route: 045
     Dates: start: 2011

REACTIONS (3)
  - Pharyngeal oedema [Not Recovered/Not Resolved]
  - Lip swelling [Not Recovered/Not Resolved]
  - Swollen tongue [Not Recovered/Not Resolved]
